FAERS Safety Report 10755516 (Version 1)
Quarter: 2015Q1

REPORT INFORMATION
  Report Type: Spontaneous
  Country: DE (occurrence: DE)
  Receive Date: 20150202
  Receipt Date: 20150202
  Transmission Date: 20150721
  Serious: Yes (Congenital Anomaly, Other)
  Sender: FDA-Public Use
  Company Number: DE-ELI_LILLY_AND_COMPANY-DE201501007330

PATIENT
  Age: 1 Day
  Weight: 2.85 kg

DRUGS (2)
  1. OLANZAPINE. [Suspect]
     Active Substance: OLANZAPINE
     Indication: SLEEP DISORDER
     Dosage: 2.5 MG, QD
     Route: 064
  2. AMITRIPTYLIN [Suspect]
     Active Substance: AMITRIPTYLINE
     Indication: DEPRESSION
     Dosage: 10 MG, QD
     Route: 064
     Dates: start: 20130907, end: 20140608

REACTIONS (3)
  - Cleft lip [Unknown]
  - Foetal exposure during pregnancy [Recovered/Resolved]
  - Small for dates baby [Unknown]

NARRATIVE: CASE EVENT DATE: 20140403
